FAERS Safety Report 9123091 (Version 3)
Quarter: 2013Q1

REPORT INFORMATION
  Report Type: Spontaneous
  Country: AT (occurrence: AT)
  Receive Date: 20130227
  Receipt Date: 20130318
  Transmission Date: 20140127
  Serious: Yes (Hospitalization, Other)
  Sender: FDA-Public Use
  Company Number: AT-JNJFOC-20130211453

PATIENT
  Sex: Female
  Weight: 42 kg

DRUGS (7)
  1. XARELTO [Suspect]
     Indication: CEREBROVASCULAR ACCIDENT PROPHYLAXIS
     Route: 048
     Dates: start: 20121221, end: 20130122
  2. XARELTO [Suspect]
     Indication: ATRIAL FIBRILLATION
     Route: 048
     Dates: start: 20121221, end: 20130122
  3. OLMESARTAN MEDOXOMIL [Concomitant]
     Route: 065
  4. SEDACORON [Concomitant]
     Route: 065
  5. ALENDRONIC ACID [Concomitant]
     Route: 065
  6. DANCOR [Concomitant]
     Route: 065
  7. TROMCARDIN [Concomitant]
     Route: 065

REACTIONS (5)
  - Rash [Recovered/Resolved]
  - Rash macular [Recovered/Resolved]
  - Urinary tract infection [Unknown]
  - Oesophagitis [Recovered/Resolved]
  - Abdominal pain upper [Unknown]
